FAERS Safety Report 7939080-5 (Version None)
Quarter: 2011Q4

REPORT INFORMATION
  Report Type: 
  Country: None (occurrence: None)
  Receive Date: 20111124
  Receipt Date: 20111121
  Transmission Date: 20120403
  Serious: Yes (Hospitalization, Other)
  Sender: FDA-Public Use
  Company Number: FR-PFIZER INC-2011284521

PATIENT
  Age: 30 Year
  Sex: Female

DRUGS (3)
  1. HYDROXYZINE [Suspect]
     Dosage: 250 MG, SINGLE
  2. VENLAFAXINE HCL [Suspect]
     Dosage: 5.5 G, SINGLE
  3. ALPRAZOLAM [Suspect]
     Dosage: 500 MG, SINGLE

REACTIONS (6)
  - CONVULSION [None]
  - SEROTONIN SYNDROME [None]
  - RHABDOMYOLYSIS [None]
  - OVERDOSE [None]
  - VENTRICULAR FAILURE [None]
  - PULMONARY OEDEMA [None]
